FAERS Safety Report 4440569-4 (Version None)
Quarter: 2004Q3

REPORT INFORMATION
  Report Type: 
  Country: None (occurrence: None)
  Receive Date: 20040903
  Receipt Date: 20040705
  Transmission Date: 20050211
  Serious: Yes (Life-Threatening, Hospitalization)
  Sender: FDA-Public Use
  Company Number: GB-ROCHE-373081

PATIENT
  Age: 3 Year
  Sex: Male
  Weight: 13 kg

DRUGS (11)
  1. CYMEVENE [Suspect]
     Dosage: NO REGIMEN PROVIDED.
     Route: 048
     Dates: start: 20040617
  2. TACROLIMUS [Suspect]
     Indication: RENAL TRANSPLANT
     Dosage: DOSAGE REGIMEN REPORTED AS 3 MG AM AND 4 MG PM.
     Route: 048
     Dates: start: 20040617
  3. ATENOLOL [Suspect]
     Indication: HYPERTENSION
     Dosage: DOSAGE REGIMEN REPORTED AS 30 MG.
     Route: 048
     Dates: start: 20040621, end: 20040702
  4. AZATHIOPRINE [Concomitant]
     Indication: RENAL TRANSPLANT
     Dosage: DOSAGE REGIMEN REPORTED AS 25 MG.
     Route: 048
     Dates: start: 20040617
  5. STEROIDS NOS [Concomitant]
  6. PREDNISOLONE [Concomitant]
     Indication: RENAL TRANSPLANT
     Dosage: DOSAGE REGIMEN REPORTED AS 15 MG.
     Route: 048
     Dates: start: 20040617
  7. OMEPRAZOLE [Concomitant]
     Indication: PROPHYLAXIS
     Dosage: DOSE REPORTED AS 20 MG.
     Route: 048
     Dates: start: 20040617
  8. ASPIRIN [Concomitant]
     Indication: THROMBOSIS PROPHYLAXIS
     Dosage: DOSE REPORTED AS 37.5 MG.
     Route: 048
     Dates: start: 20040617
  9. COTRIMOXAZOLE [Concomitant]
     Dosage: DOSE REPORTED AS 240 MG.
     Route: 048
     Dates: start: 20040617
  10. AMLODIPINE [Concomitant]
     Indication: HYPERTENSION
     Dosage: DOSE REPORTED AS 10 MG.
     Route: 048
     Dates: start: 20040618
  11. DOXAZOSIN [Concomitant]
     Indication: HYPERTENSION
     Dosage: DOSE REPORTED AS 2 MG.
     Route: 048
     Dates: start: 20040623

REACTIONS (1)
  - ATRIOVENTRICULAR BLOCK COMPLETE [None]
